FAERS Safety Report 14344113 (Version 1)
Quarter: 2018Q1

REPORT INFORMATION
  Report Type: Spontaneous
  Country: FI (occurrence: FI)
  Receive Date: 20180102
  Receipt Date: 20180102
  Transmission Date: 20180509
  Serious: Yes (Hospitalization)
  Sender: FDA-Public Use
  Company Number: FI-OTSUKA-2017_028074

PATIENT
  Age: 31 Year
  Sex: Female

DRUGS (2)
  1. ABILIFY [Suspect]
     Active Substance: ARIPIPRAZOLE
     Indication: SCHIZOPHRENIA
     Dosage: UNK
     Route: 048
     Dates: start: 2011, end: 201704
  2. VENLAFAXINE [Concomitant]
     Active Substance: VENLAFAXINE HYDROCHLORIDE
     Indication: SCHIZOPHRENIA
     Dosage: UNK
     Route: 048
     Dates: start: 2011, end: 201704

REACTIONS (11)
  - Abnormal behaviour [Recovering/Resolving]
  - Hypersexuality [Recovering/Resolving]
  - Economic problem [Unknown]
  - Mania [Recovering/Resolving]
  - Compulsive shopping [Recovering/Resolving]
  - Akathisia [Recovering/Resolving]
  - Soliloquy [Recovering/Resolving]
  - Aggression [Recovering/Resolving]
  - Gambling disorder [Recovering/Resolving]
  - Restlessness [Recovering/Resolving]
  - Prostitute [Unknown]

NARRATIVE: CASE EVENT DATE: 20120501
